FAERS Safety Report 4613735-2 (Version None)
Quarter: 2005Q1

REPORT INFORMATION
  Report Type: 
  Country: None (occurrence: None)
  Receive Date: 20050321
  Receipt Date: 20050304
  Transmission Date: 20050727
  Serious: Yes (Other)
  Sender: FDA-Public Use
  Company Number: DE-BOEHRINGER INGELHEIM PHARMACEUTICALS, INC.-2005-DE-00897DE

PATIENT
  Sex: Female

DRUGS (2)
  1. MOBEC 15 MG TABLETTEN [Suspect]
     Indication: ARTHRALGIA
     Route: 048
     Dates: start: 20031101, end: 20040201
  2. MOBEC 15 MG TABLETTEN [Suspect]
     Indication: OSTEOARTHRITIS

REACTIONS (2)
  - ABDOMINAL PAIN [None]
  - FAECES DISCOLOURED [None]
